FAERS Safety Report 5416716-4 (Version None)
Quarter: 2007Q3

REPORT INFORMATION
  Report Type: 
  Country: None (occurrence: None)
  Receive Date: 20070816
  Receipt Date: 20070810
  Transmission Date: 20080115
  Serious: Yes (Other)
  Sender: FDA-Public Use
  Company Number: A0669506A

PATIENT
  Age: 73 Year
  Sex: Female

DRUGS (7)
  1. ADVAIR DISKUS 100/50 [Suspect]
     Indication: CHRONIC OBSTRUCTIVE PULMONARY DISEASE
     Dosage: 1PUFF PER DAY
     Route: 055
     Dates: start: 20030101
  2. SPIRIVA [Concomitant]
  3. LIPITOR [Concomitant]
  4. VERAPAMIL [Concomitant]
  5. CELEXA [Concomitant]
  6. ZETIA [Concomitant]
  7. ATACAND [Concomitant]

REACTIONS (1)
  - COLOUR BLINDNESS [None]
